FAERS Safety Report 23743504 (Version 1)
Quarter: 2024Q2

REPORT INFORMATION
  Report Type: Spontaneous
  Country: US (occurrence: None)
  Receive Date: 20240413
  Receipt Date: 20240413
  Transmission Date: 20240716
  Serious: No
  Sender: FDA-Public Use
  Company Number: None

PATIENT
  Age: 58 Year
  Sex: Female
  Weight: 110.25 kg

DRUGS (3)
  1. OZEMPIC [Suspect]
     Active Substance: SEMAGLUTIDE
     Indication: Glucose tolerance impaired
     Dosage: FREQUENCY : WEEKLY;?
     Route: 058
  2. Flintstones multivitamin with iron [Concomitant]
  3. gummy multivitamin for women [Concomitant]

REACTIONS (2)
  - Cholelithiasis [None]
  - Cholecystectomy [None]

NARRATIVE: CASE EVENT DATE: 20230703
